FAERS Safety Report 5357131-1 (Version None)
Quarter: 2007Q2

REPORT INFORMATION
  Report Type: 
  Country: None (occurrence: None)
  Receive Date: 20070614
  Receipt Date: 20070608
  Transmission Date: 20071010
  Serious: Yes (Hospitalization)
  Sender: FDA-Public Use
  Company Number: IT-GENENTECH-242021

PATIENT
  Sex: Male

DRUGS (2)
  1. RAPTIVA [Suspect]
     Indication: PSORIASIS
     Dosage: 100 MG/ML, 1/WEEK
     Route: 058
     Dates: start: 20061214, end: 20070316
  2. LEVOFLOXACIN [Suspect]
     Indication: PYODERMA
     Dosage: 500 MG, QD
     Route: 048
     Dates: start: 20070312, end: 20070314

REACTIONS (3)
  - DERMATITIS [None]
  - DERMATITIS ATOPIC [None]
  - PSORIASIS [None]
